FAERS Safety Report 7818179-8 (Version None)
Quarter: 2011Q4

REPORT INFORMATION
  Report Type: 
  Country: None (occurrence: None)
  Receive Date: 20111017
  Receipt Date: 20111004
  Transmission Date: 20120403
  Serious: Yes (Hospitalization)
  Sender: FDA-Public Use
  Company Number: US-ELI_LILLY_AND_COMPANY-US201109003524

PATIENT
  Sex: Female

DRUGS (11)
  1. HUMALOG [Suspect]
     Dosage: 10 U, EACH EVENING
  2. NOVOLIN N [Concomitant]
     Dosage: 15 U, EACH MORNING
     Dates: start: 20110901
  3. NOVOLIN N [Concomitant]
     Dosage: 10 U, EACH EVENING
     Dates: start: 20110901
  4. HUMALOG [Suspect]
     Dosage: UNK, PRN
  5. ANTIHYPERTENSIVES [Concomitant]
     Indication: HYPERTENSION
     Dosage: UNK
  6. HUMALOG [Suspect]
     Dosage: 10 U, EACH EVENING
  7. HUMALOG [Suspect]
     Dosage: UNK, PRN
  8. HUMALOG [Suspect]
     Dosage: 20 U, EACH EVENING
     Dates: start: 20110926
  9. HUMALOG [Suspect]
     Dosage: 20 U, EACH EVENING
     Dates: start: 20110926
  10. NOVOLIN N [Concomitant]
     Dosage: 20 U, EACH EVENING
     Dates: start: 20110926
  11. HUMALOG [Suspect]
     Indication: TYPE 2 DIABETES MELLITUS
     Dosage: UNK, PRN
     Dates: start: 19860101

REACTIONS (21)
  - LIMB OPERATION [None]
  - HEART RATE DECREASED [None]
  - ANGIOGRAM PERIPHERAL [None]
  - THERAPEUTIC REACTION TIME DECREASED [None]
  - BLOOD GLUCOSE INCREASED [None]
  - SPINAL FUSION SURGERY [None]
  - RHEUMATOID ARTHRITIS [None]
  - CYSTITIS [None]
  - WOUND [None]
  - IMPAIRED HEALING [None]
  - PYREXIA [None]
  - APATHY [None]
  - ARTHRITIS [None]
  - KNEE OPERATION [None]
  - PNEUMONIA [None]
  - MOBILITY DECREASED [None]
  - BACK PAIN [None]
  - MEMORY IMPAIRMENT [None]
  - BLOOD GLUCOSE FLUCTUATION [None]
  - HYPERHIDROSIS [None]
  - CLOSTRIDIAL INFECTION [None]
